FAERS Safety Report 24658407 (Version 1)
Quarter: 2024Q4

REPORT INFORMATION
  Report Type: Spontaneous
  Country: CN (occurrence: CN)
  Receive Date: 20241125
  Receipt Date: 20241125
  Transmission Date: 20250115
  Serious: Yes (Other)
  Sender: Steriscience PTE
  Company Number: CN-STERISCIENCE B.V.-2024-ST-001965

PATIENT
  Sex: Female
  Weight: 1620 kg

DRUGS (4)
  1. AMPICILLIN [Suspect]
     Active Substance: AMPICILLIN
     Indication: Product used for unknown indication
     Dosage: FOR 48 HOURS
     Route: 064
  2. ERYTHROMYCIN [Suspect]
     Active Substance: ERYTHROMYCIN
     Indication: Product used for unknown indication
     Dosage: FOR 48 HOURS
     Route: 064
  3. DEXAMETHASONE [Suspect]
     Active Substance: DEXAMETHASONE
     Indication: Product used for unknown indication
     Dosage: 5MG/12H, A TOTAL OF 4?TIMES
     Route: 064
  4. MAGNESIUM SULFATE [Suspect]
     Active Substance: MAGNESIUM SULFATE
     Indication: Product used for unknown indication
     Dosage: 4 GRAM
     Route: 064

REACTIONS (3)
  - Premature baby [Unknown]
  - Low birth weight baby [Unknown]
  - Foetal exposure during pregnancy [Unknown]
